FAERS Safety Report 4552918-7 (Version None)
Quarter: 2005Q1

REPORT INFORMATION
  Report Type: 
  Country: None (occurrence: None)
  Receive Date: 20050114
  Receipt Date: 20050106
  Transmission Date: 20050727
  Serious: Yes (Other)
  Sender: FDA-Public Use
  Company Number: US-GLAXOSMITHKLINE-A0539576A

PATIENT
  Age: 82 Year
  Sex: Female
  Weight: 54.5 kg

DRUGS (10)
  1. DEBROX DROPS [Suspect]
     Indication: CERUMEN REMOVAL
     Route: 001
     Dates: start: 20050105, end: 20050105
  2. LIPITOR [Concomitant]
     Indication: BLOOD CHOLESTEROL INCREASED
     Route: 048
  3. PLAVIX [Concomitant]
     Indication: THROMBOSIS PROPHYLAXIS
     Route: 048
  4. DIGOXIN [Concomitant]
     Indication: HYPERTENSION
     Route: 048
  5. LASIX [Concomitant]
     Indication: HYPERTENSION
     Route: 048
  6. POTASSIUM [Concomitant]
     Indication: SUBSTITUTION THERAPY
     Route: 048
  7. IMDUR [Concomitant]
     Indication: ANGINA PECTORIS
     Route: 048
  8. COREG [Concomitant]
     Indication: HYPERTENSION
     Route: 048
  9. COSOPT [Concomitant]
     Indication: GLAUCOMA
     Route: 047
  10. FOSAMAX [Concomitant]
     Indication: OSTEOPOROSIS
     Route: 048

REACTIONS (2)
  - DEAFNESS [None]
  - TINNITUS [None]
